FAERS Safety Report 5939613-4 (Version None)
Quarter: 2008Q4

REPORT INFORMATION
  Report Type: 
  Country: None (occurrence: None)
  Receive Date: 20081030
  Receipt Date: 20081030
  Transmission Date: 20090506
  Serious: Yes (Hospitalization)
  Sender: FDA-Public Use
  Company Number: None

PATIENT
  Age: 16 Year
  Sex: Female
  Weight: 61 kg

DRUGS (1)
  1. BACTRIM DS [Suspect]
     Indication: FOLLICULITIS
     Dosage: 2 TABS BID PO
     Route: 048
     Dates: start: 20081009, end: 20081026

REACTIONS (6)
  - BLISTER [None]
  - EYE SWELLING [None]
  - LIP SWELLING [None]
  - OROPHARYNGEAL PAIN [None]
  - RASH [None]
  - SWELLING FACE [None]
